FAERS Safety Report 4637210-4 (Version None)
Quarter: 2005Q1

REPORT INFORMATION
  Report Type: 
  Country: None (occurrence: None)
  Receive Date: 20050325
  Receipt Date: 20041130
  Transmission Date: 20050727
  Serious: No
  Sender: FDA-Public Use
  Company Number: USA041285099

PATIENT
  Sex: Female

DRUGS (1)
  1. FORTEO [Suspect]
     Dates: start: 20031101, end: 20041101

REACTIONS (2)
  - MUSCLE FATIGUE [None]
  - MUSCULAR WEAKNESS [None]
